FAERS Safety Report 6442844-0 (Version None)
Quarter: 2009Q4

REPORT INFORMATION
  Report Type: 
  Country: None (occurrence: None)
  Receive Date: 20091117
  Receipt Date: 20091111
  Transmission Date: 20100525
  Serious: Yes (Death, Other)
  Sender: FDA-Public Use
  Company Number: ES-CELGENEUS-144-20785-09110931

PATIENT
  Sex: Female
  Weight: 66.4 kg

DRUGS (4)
  1. THALIDOMIDE [Suspect]
     Route: 048
     Dates: start: 20060704, end: 20060713
  2. ETOPOSIDE [Suspect]
     Route: 065
     Dates: start: 20060704, end: 20060704
  3. CYCLOPHOSPHAMIDE [Suspect]
     Route: 065
     Dates: start: 20060704, end: 20060704
  4. DEXAMETHASONE [Suspect]
     Route: 065
     Dates: start: 20060704, end: 20060707

REACTIONS (2)
  - PANCYTOPENIA [None]
  - SEPTIC SHOCK [None]
